FAERS Safety Report 17871392 (Version 1)
Quarter: 2020Q2

REPORT INFORMATION
  Report Type: Spontaneous
  Country: US (occurrence: US)
  Receive Date: 20200608
  Receipt Date: 20200608
  Transmission Date: 20200714
  Serious: Yes (Disabling, Other)
  Sender: FDA-Public Use
  Company Number: None

PATIENT
  Age: 44 Year
  Sex: Male
  Weight: 103.5 kg

DRUGS (4)
  1. NONE [Concomitant]
     Active Substance: UNSPECIFIED INGREDIENT
  2. PROPECIA [Suspect]
     Active Substance: FINASTERIDE
     Indication: ANDROGENETIC ALOPECIA
     Route: 048
     Dates: start: 19980615, end: 20031115
  3. NONE [Concomitant]
     Active Substance: UNSPECIFIED INGREDIENT
  4. NONE [Concomitant]
     Active Substance: UNSPECIFIED INGREDIENT

REACTIONS (4)
  - Erectile dysfunction [None]
  - Depression [None]
  - Anxiety [None]
  - Libido decreased [None]
